FAERS Safety Report 8300205-3 (Version None)
Quarter: 2012Q2

REPORT INFORMATION
  Report Type: 
  Country: None (occurrence: None)
  Receive Date: 20120420
  Receipt Date: 20120417
  Transmission Date: 20120825
  Serious: Yes (Other)
  Sender: FDA-Public Use
  Company Number: DE-PFIZER INC-2012095930

PATIENT
  Age: 38 Year
  Sex: Female

DRUGS (2)
  1. SEROQUEL [Concomitant]
     Dosage: 25 UNK
  2. ZIPRASIDONE HYDROCHLORIDE [Suspect]
     Dosage: 60 UNK
     Dates: start: 20020101

REACTIONS (6)
  - WITHDRAWAL SYNDROME [None]
  - HICCUPS [None]
  - DEPRESSED LEVEL OF CONSCIOUSNESS [None]
  - DEPENDENCE [None]
  - LOGORRHOEA [None]
  - PERIPHERAL VASCULAR DISORDER [None]
